FAERS Safety Report 4898017-6 (Version None)
Quarter: 2006Q1

REPORT INFORMATION
  Report Type: 
  Country: None (occurrence: None)
  Receive Date: 20060201
  Receipt Date: 20060123
  Transmission Date: 20060701
  Serious: Yes (Hospitalization)
  Sender: FDA-Public Use
  Company Number: AU-ROCHE-433335

PATIENT
  Weight: 50 kg

DRUGS (2)
  1. CEFTRIAXONE SODIUM [Suspect]
     Route: 042
     Dates: end: 20041006
  2. TEICOPLANIN [Suspect]
     Route: 042
     Dates: end: 20041006

REACTIONS (5)
  - BACK PAIN [None]
  - CHILLS [None]
  - HEADACHE [None]
  - NAUSEA [None]
  - PHARYNGOLARYNGEAL PAIN [None]
